FAERS Safety Report 4362621-4 (Version None)
Quarter: 2004Q2

REPORT INFORMATION
  Report Type: 
  Country: None (occurrence: None)
  Receive Date: 20040520
  Receipt Date: 20040503
  Transmission Date: 20050107
  Serious: No
  Sender: FDA-Public Use
  Company Number: TPA2003A01733

PATIENT
  Age: 61 Year
  Sex: Male

DRUGS (14)
  1. ACTOS [Suspect]
     Indication: DIABETES MELLITUS
     Dosage: PER ORAL
     Route: 048
     Dates: start: 20010101
  2. AVANDIA [Suspect]
     Dates: start: 20010101
  3. INSULIN [Concomitant]
  4. NEURONTIN [Concomitant]
  5. RENAGEL [Concomitant]
  6. PHOSLO [Concomitant]
  7. NEPHROCAP (NEPHROCAPS) [Concomitant]
  8. ZESTRIL [Concomitant]
  9. SPECTAZOLE (ECONAZOLE NITRATE) (CREAM) [Concomitant]
  10. QUININE (QUININE) [Concomitant]
  11. ASPIRIN [Concomitant]
  12. EPOGEN [Concomitant]
  13. MECLIZINE [Concomitant]
  14. LASIX [Concomitant]

REACTIONS (10)
  - CATARACT [None]
  - DIABETIC RETINOPATHY [None]
  - DIALYSIS [None]
  - MACULAR OEDEMA [None]
  - PITTING OEDEMA [None]
  - RETINAL EXUDATES [None]
  - RETINAL HAEMORRHAGE [None]
  - RETINAL MICROANEURYSMS [None]
  - VISUAL ACUITY REDUCED [None]
  - WEIGHT INCREASED [None]
